FAERS Safety Report 9738761 (Version 2)
Quarter: 2013Q4

REPORT INFORMATION
  Report Type: Spontaneous
  Country: DE (occurrence: DE)
  Receive Date: 20131209
  Receipt Date: 20131223
  Transmission Date: 20140711
  Serious: Yes (Hospitalization, Disabling)
  Sender: FDA-Public Use
  Company Number: DE-JNJFOC-20131201204

PATIENT
  Age: 69 Year
  Sex: Female
  Weight: 65 kg

DRUGS (4)
  1. SIMPONI [Suspect]
     Indication: ANKYLOSING SPONDYLITIS
     Route: 058
     Dates: start: 20120320, end: 20130711
  2. DECORTIN H [Concomitant]
     Route: 048
     Dates: start: 20120307
  3. VALSARTAN [Concomitant]
     Route: 048
     Dates: start: 20120402
  4. AMLODIPINE [Concomitant]
     Route: 065
     Dates: start: 20120312

REACTIONS (2)
  - Invasive ductal breast carcinoma [Unknown]
  - Mastitis [Unknown]
